FAERS Safety Report 12109025 (Version 1)
Quarter: 2016Q1

REPORT INFORMATION
  Report Type: Spontaneous
  Country: US (occurrence: None)
  Receive Date: 20160222
  Receipt Date: 20160222
  Transmission Date: 20160526
  Serious: Yes (Other)
  Sender: FDA-Public Use
  Company Number: None

PATIENT
  Age: 21 Year
  Sex: Female
  Weight: 54 kg

DRUGS (1)
  1. ACCUTANE [Suspect]
     Active Substance: ISOTRETINOIN
     Indication: ACNE
     Route: 048

REACTIONS (3)
  - Chest pain [None]
  - Musculoskeletal chest pain [None]
  - Dyspnoea [None]

NARRATIVE: CASE EVENT DATE: 20151015
